FAERS Safety Report 7226737-7 (Version None)
Quarter: 2011Q1

REPORT INFORMATION
  Report Type: 
  Country: None (occurrence: None)
  Receive Date: 20110105
  Receipt Date: 20101221
  Transmission Date: 20110831
  Serious: Yes (Death, Hospitalization)
  Sender: FDA-Public Use
  Company Number: DSA_44112_2010

PATIENT
  Sex: Male

DRUGS (15)
  1. METFORMIN [Concomitant]
  2. AMITRIPTYLINE HYDROCHLORIDE [Concomitant]
  3. ASPIRIN [Concomitant]
  4. BISOPROLOL FUMARATE [Concomitant]
  5. ENALAPRIL MALEATE [Suspect]
     Indication: PRODUCT USED FOR UNKNOWN INDICATION
     Dosage: (DF ORAL)
     Route: 048
  6. APIXABAN (APIXABAN) 5 MG [Suspect]
     Indication: THROMBOSIS PROPHYLAXIS
     Dosage: (5 MG QD ORAL)
     Route: 048
     Dates: start: 20090905, end: 20091125
  7. NORVASC [Concomitant]
  8. PANTOPRAZOLE [Concomitant]
  9. LANTUS [Concomitant]
  10. ENALAPRIL MALEATE [Concomitant]
  11. METOLAZONE [Concomitant]
  12. PLAVIX [Concomitant]
  13. PLACEBO [Suspect]
     Indication: THROMBOSIS PROPHYLAXIS
     Dosage: (ORAL)
     Route: 048
     Dates: start: 20090905, end: 20091125
  14. LASIX [Concomitant]
  15. HUMALOG [Concomitant]

REACTIONS (6)
  - VENTRICULAR TACHYCARDIA [None]
  - CHEST PAIN [None]
  - CORONARY ARTERY DISEASE [None]
  - ANGIOEDEMA [None]
  - UNRESPONSIVE TO STIMULI [None]
  - ACUTE MYOCARDIAL INFARCTION [None]
